FAERS Safety Report 23755335 (Version 1)
Quarter: 2024Q2

REPORT INFORMATION
  Report Type: Spontaneous
  Country: US (occurrence: US)
  Receive Date: 20240418
  Receipt Date: 20240418
  Transmission Date: 20240716
  Serious: No
  Sender: FDA-Public Use
  Company Number: US-HALEON-2169115

PATIENT
  Sex: Male
  Weight: 88 kg

DRUGS (7)
  1. ADVIL [Suspect]
     Active Substance: IBUPROFEN
     Indication: Product used for unknown indication
     Route: 065
  2. TREPROSTINIL [Suspect]
     Active Substance: TREPROSTINIL
     Indication: Pulmonary arterial hypertension
     Dosage: ROUTE: INHALATION
  3. TREPROSTINIL [Suspect]
     Active Substance: TREPROSTINIL
     Dosage: ROUTE: INHALATION
     Dates: start: 20220809
  4. TYVASO DPI [Suspect]
     Active Substance: TREPROSTINIL
     Indication: Pulmonary arterial hypertension
     Dosage: ROUTE: INHALATION
  5. METOPROLOL SUCCINATE [Concomitant]
     Active Substance: METOPROLOL SUCCINATE
  6. OPSUMIT [Concomitant]
     Active Substance: MACITENTAN
  7. LOSARTAN POTASSIUM [Concomitant]
     Active Substance: LOSARTAN POTASSIUM

REACTIONS (2)
  - Rash [Unknown]
  - Drug hypersensitivity [Unknown]
